FAERS Safety Report 12311757 (Version 2)
Quarter: 2016Q2

REPORT INFORMATION
  Report Type: Report from Study
  Country: MX (occurrence: MX)
  Receive Date: 20160427
  Receipt Date: 20160601
  Transmission Date: 20160815
  Serious: Yes (Other)
  Sender: FDA-Public Use
  Company Number: PHHY2016MX046612

PATIENT
  Age: 71 Year
  Sex: Male

DRUGS (2)
  1. EXFORGE HCT [Suspect]
     Active Substance: AMLODIPINE BESYLATE\HYDROCHLOROTHIAZIDE\VALSARTAN
     Indication: HYPERTENSION
     Dosage: 1 DF (5MG AMLODIPINE, 12.5MG HYDROCHLOROTHIAZIDE, 160MG VALSARTAN) QD
     Route: 048
  2. EXFORGE HCT [Suspect]
     Active Substance: AMLODIPINE BESYLATE\HYDROCHLOROTHIAZIDE\VALSARTAN
     Dosage: 0.5 DF (5MG AMLODIPINE, 12.5MG HYDROCHLOROTHIAZIDE, 160MG VALSARTAN), QD
     Route: 048
     Dates: start: 201503

REACTIONS (5)
  - Cholelithiasis [Unknown]
  - Body temperature abnormal [Recovered/Resolved]
  - Pain [Recovered/Resolved]
  - Blood pressure decreased [Unknown]
  - Wrong technique in product usage process [Not Recovered/Not Resolved]

NARRATIVE: CASE EVENT DATE: 201503
